FAERS Safety Report 19066362 (Version 1)
Quarter: 2021Q1

REPORT INFORMATION
  Report Type: Spontaneous
  Country: US (occurrence: US)
  Receive Date: 20210328
  Receipt Date: 20210328
  Transmission Date: 20210420
  Serious: Yes (Hospitalization)
  Sender: FDA-Public Use
  Company Number: US-TEVA-2021-US-1893807

PATIENT
  Age: 1 Month
  Sex: Male

DRUGS (2)
  1. DIAZOXIDE [Suspect]
     Active Substance: DIAZOXIDE
     Indication: HYPERINSULINISM
     Route: 065
  2. ENALAPRIL [Concomitant]
     Active Substance: ENALAPRIL
     Indication: INCREASED VENTRICULAR AFTERLOAD
     Route: 065

REACTIONS (4)
  - Right ventricular dysfunction [Recovered/Resolved]
  - Pulmonary hypertension [Recovered/Resolved]
  - Right ventricular hypertrophy [Recovered/Resolved]
  - Right atrial dilatation [Recovered/Resolved]
